FAERS Safety Report 22114937 (Version 2)
Quarter: 2023Q2

REPORT INFORMATION
  Report Type: Spontaneous
  Country: CA (occurrence: CA)
  Receive Date: 20230320
  Receipt Date: 20230511
  Transmission Date: 20230721
  Serious: Yes (Hospitalization)
  Sender: FDA-Public Use
  Company Number: CA-PFIZER INC-202300112532

PATIENT
  Age: 75 Year
  Sex: Female

DRUGS (4)
  1. RUXIENCE [Suspect]
     Active Substance: RITUXIMAB-PVVR
     Indication: Rheumatoid arthritis
     Dosage: 1000 MG, DAY 1 AND DAY 15
     Route: 042
     Dates: start: 20210506, end: 20210520
  2. RUXIENCE [Suspect]
     Active Substance: RITUXIMAB-PVVR
     Dosage: 1000 MG, DAY 1 AND DAY 15
     Route: 042
     Dates: start: 20220425, end: 20220510
  3. RUXIENCE [Suspect]
     Active Substance: RITUXIMAB-PVVR
     Dosage: UNK
     Dates: start: 20220510
  4. RUXIENCE [Suspect]
     Active Substance: RITUXIMAB-PVVR
     Dosage: 1000 MG, DAY 15
     Dates: start: 20230505

REACTIONS (4)
  - Fibromyalgia [Not Recovered/Not Resolved]
  - Drug ineffective [Unknown]
  - Blood pressure increased [Unknown]
  - Pain [Unknown]

NARRATIVE: CASE EVENT DATE: 20230505
